FAERS Safety Report 25920327 (Version 2)
Quarter: 2025Q4

REPORT INFORMATION
  Report Type: Spontaneous
  Country: EU (occurrence: EU)
  Receive Date: 20251014
  Receipt Date: 20251202
  Transmission Date: 20260117
  Serious: No
  Sender: JOHNSON AND JOHNSON
  Company Number: EU-JNJFOC-20251011277

PATIENT

DRUGS (3)
  1. TECVAYLI [Suspect]
     Active Substance: TECLISTAMAB-CQYV
     Indication: Product used for unknown indication
     Route: 065
  2. TALVEY [Suspect]
     Active Substance: TALQUETAMAB-TGVS
     Indication: Product used for unknown indication
     Route: 065
  3. TALVEY [Suspect]
     Active Substance: TALQUETAMAB-TGVS
     Route: 065

REACTIONS (2)
  - Product preparation error [Unknown]
  - Product name confusion [Unknown]

NARRATIVE: CASE EVENT DATE: 20251008
